FAERS Safety Report 7905448-6 (Version None)
Quarter: 2011Q4

REPORT INFORMATION
  Report Type: 
  Country: None (occurrence: None)
  Receive Date: 20111110
  Receipt Date: 20111031
  Transmission Date: 20120403
  Serious: Yes (Death)
  Sender: FDA-Public Use
  Company Number: DE-BIOGENIDEC-2011BI038805

PATIENT
  Age: 46 Year
  Sex: Female

DRUGS (2)
  1. NOVATRONE [Concomitant]
     Dates: start: 20090701, end: 20100901
  2. TYSABRI [Suspect]
     Indication: RELAPSING-REMITTING MULTIPLE SCLEROSIS
     Route: 042
     Dates: start: 20081024, end: 20090220

REACTIONS (1)
  - NO ADVERSE EVENT [None]
